FAERS Safety Report 5129919-3 (Version None)
Quarter: 2006Q4

REPORT INFORMATION
  Report Type: 
  Country: None (occurrence: None)
  Receive Date: 20061013
  Receipt Date: 20061006
  Transmission Date: 20070319
  Serious: Yes (Death)
  Sender: FDA-Public Use
  Company Number: 148353ISR

PATIENT
  Age: 90 Year

DRUGS (1)
  1. CEPHALEXIN [Suspect]
     Indication: URINARY TRACT INFECTION
     Dosage: 250 MG
     Route: 048

REACTIONS (1)
  - CLOSTRIDIAL INFECTION [None]
